FAERS Safety Report 14382705 (Version 1)
Quarter: 2018Q1

REPORT INFORMATION
  Report Type: Spontaneous
  Country: CR (occurrence: CR)
  Receive Date: 20180112
  Receipt Date: 20180112
  Transmission Date: 20180509
  Serious: Yes (Other)
  Sender: FDA-Public Use
  Company Number: CR-ASTRAZENECA-2018SE02809

PATIENT
  Age: 20287 Day
  Sex: Female

DRUGS (1)
  1. FORXIGA [Suspect]
     Active Substance: DAPAGLIFLOZIN
     Route: 048
     Dates: start: 20171228, end: 20180102

REACTIONS (4)
  - Ketoacidosis [Recovered/Resolved]
  - Hyperglycaemia [Unknown]
  - Hypotension [Unknown]
  - Chest pain [Unknown]

NARRATIVE: CASE EVENT DATE: 20180102
